FAERS Safety Report 9808764 (Version 2)
Quarter: 2014Q1

REPORT INFORMATION
  Report Type: Report from Study
  Country: ES (occurrence: JP)
  Receive Date: 20140110
  Receipt Date: 20140115
  Transmission Date: 20141002
  Serious: Yes (Hospitalization)
  Sender: FDA-Public Use
  Company Number: JP-FRI-1000052673

PATIENT
  Age: 70 Year
  Sex: Male

DRUGS (6)
  1. ACLIDINIUM [Suspect]
     Indication: CHRONIC OBSTRUCTIVE PULMONARY DISEASE
     Dosage: 800 MCG
     Route: 055
     Dates: start: 20130110
  2. MUCODYNE [Concomitant]
     Dosage: 1500 MG
     Route: 048
     Dates: start: 20111027
  3. AMBROXOL HYDROCHLORIDE [Concomitant]
     Dosage: 45 MG
     Route: 048
     Dates: start: 20111027
  4. DIOVAN [Concomitant]
     Dosage: 80 MG
     Route: 048
  5. ALLOZYM [Concomitant]
     Dosage: 100 MG
     Route: 048
  6. AZILVA [Concomitant]
     Dosage: 20 MG
     Route: 048
     Dates: start: 20130806

REACTIONS (2)
  - Chronic obstructive pulmonary disease [Recovered/Resolved]
  - Pneumonia [Recovered/Resolved]
